FAERS Safety Report 18600863 (Version 1)
Quarter: 2020Q4

REPORT INFORMATION
  Report Type: Report from Study
  Country: US (occurrence: US)
  Receive Date: 20201210
  Receipt Date: 20201210
  Transmission Date: 20210114
  Serious: No
  Sender: FDA-Public Use
  Company Number: US-AGIOS-2012US02315

PATIENT

DRUGS (18)
  1. LISINOPRIL. [Concomitant]
     Active Substance: LISINOPRIL
  2. IPRATROPIUM [Concomitant]
     Active Substance: IPRATROPIUM
  3. THERAGRAN-M                        /06012901/ [Concomitant]
  4. CYMBALTA [Concomitant]
     Active Substance: DULOXETINE HYDROCHLORIDE
  5. OMEPRAZOLE. [Concomitant]
     Active Substance: OMEPRAZOLE
  6. DIAZEPAM. [Concomitant]
     Active Substance: DIAZEPAM
  7. TAMSULOSIN [Concomitant]
     Active Substance: TAMSULOSIN
  8. AMLODIPINE [Concomitant]
     Active Substance: AMLODIPINE BESYLATE
  9. PROAIR HFA [Concomitant]
     Active Substance: ALBUTEROL SULFATE
  10. PLAVIX [Concomitant]
     Active Substance: CLOPIDOGREL BISULFATE
  11. GABAPENTIN. [Concomitant]
     Active Substance: GABAPENTIN
  12. COLCHICINE. [Concomitant]
     Active Substance: COLCHICINE
  13. VITAMIN D                          /00107901/ [Concomitant]
     Active Substance: ERGOCALCIFEROL
  14. HYDROXYUREA. [Concomitant]
     Active Substance: HYDROXYUREA
  15. ALLOPURINOL. [Concomitant]
     Active Substance: ALLOPURINOL
  16. TIBSOVO [Suspect]
     Active Substance: IVOSIDENIB
     Indication: ACUTE MYELOID LEUKAEMIA
     Dosage: 250 MILLIGRAM EVERY 48 HOURS
  17. STIOLTO RESPIMAT [Concomitant]
     Active Substance: OLODATEROL HYDROCHLORIDE\TIOTROPIUM BROMIDE MONOHYDRATE
  18. ROPINIROLE. [Concomitant]
     Active Substance: ROPINIROLE

REACTIONS (2)
  - Nausea [Unknown]
  - Off label use [Not Recovered/Not Resolved]
